FAERS Safety Report 23899175 (Version 1)
Quarter: 2024Q2

REPORT INFORMATION
  Report Type: Spontaneous
  Country: US (occurrence: US)
  Receive Date: 20240526
  Receipt Date: 20240526
  Transmission Date: 20240716
  Serious: No
  Sender: FDA-Public Use
  Company Number: US-JNJFOC-20240526099

PATIENT
  Sex: Female

DRUGS (1)
  1. WOMENS ROGAINE [Suspect]
     Active Substance: MINOXIDIL
     Indication: Alopecia
     Dosage: 1ML TWICE A DAY
     Route: 061
     Dates: start: 20240503

REACTIONS (1)
  - Application site pruritus [Recovering/Resolving]

NARRATIVE: CASE EVENT DATE: 20240504
